FAERS Safety Report 20237247 (Version 1)
Quarter: 2021Q4

REPORT INFORMATION
  Report Type: Spontaneous
  Country: US (occurrence: US)
  Receive Date: 20211228
  Receipt Date: 20211228
  Transmission Date: 20220303
  Serious: No
  Sender: FDA-Public Use
  Company Number: US-PFIZER INC-2019250428

PATIENT
  Age: 93 Year
  Sex: Female
  Weight: 58.97 kg

DRUGS (3)
  1. DETROL LA [Suspect]
     Active Substance: TOLTERODINE TARTRATE
     Dosage: UNK
  2. DETROL LA [Suspect]
     Active Substance: TOLTERODINE TARTRATE
     Dosage: UNK
  3. ELIQUIS [Concomitant]
     Active Substance: APIXABAN
     Dosage: 2.5 MG, 2X/DAY

REACTIONS (1)
  - Memory impairment [Unknown]
